FAERS Safety Report 6608849-1 (Version None)
Quarter: 2010Q1

REPORT INFORMATION
  Report Type: 
  Country: None (occurrence: None)
  Receive Date: 20100301
  Receipt Date: 20100219
  Transmission Date: 20100710
  Serious: Yes (Hospitalization, Disabling, Other)
  Sender: FDA-Public Use
  Company Number: BR-PFIZER INC-2010022501

PATIENT
  Age: 33 Year
  Sex: Female
  Weight: 55 kg

DRUGS (1)
  1. DEPO-PROVERA [Suspect]
     Indication: CONTRACEPTION
     Dosage: 150 MG, EVERY 3 MONTHS
     Route: 030
     Dates: start: 20070101

REACTIONS (6)
  - ALOPECIA [None]
  - AMENORRHOEA [None]
  - DEPRESSION [None]
  - MEMORY IMPAIRMENT [None]
  - MENTAL DISORDER [None]
  - NERVOUSNESS [None]
